FAERS Safety Report 4685054-X (Version None)
Quarter: 2005Q2

REPORT INFORMATION
  Report Type: 
  Country: None (occurrence: None)
  Receive Date: 20050603
  Receipt Date: 20050526
  Transmission Date: 20051028
  Serious: Yes (Life-Threatening, Hospitalization, Disabling)
  Sender: FDA-Public Use
  Company Number: 11259

PATIENT
  Age: 77 Year
  Sex: Female

DRUGS (5)
  1. CARBOPLATIN [Suspect]
     Dosage: IV
     Route: 042
  2. FUROSEMIDE [Concomitant]
  3. SPIRONOLACTONE [Concomitant]
  4. ATORVASTATIN CALCIUM [Concomitant]
  5. THYROXINE [Concomitant]

REACTIONS (5)
  - ASCITES [None]
  - HYPOCALCAEMIA [None]
  - HYPOMAGNESAEMIA [None]
  - LETHARGY [None]
  - OVARIAN CANCER [None]
